FAERS Safety Report 16933926 (Version 1)
Quarter: 2019Q4

REPORT INFORMATION
  Report Type: Spontaneous
  Country: BR (occurrence: BR)
  Receive Date: 20191018
  Receipt Date: 20191018
  Transmission Date: 20200122
  Serious: Yes (Other)
  Sender: FDA-Public Use
  Company Number: BR-SA-2019SA076092

PATIENT
  Sex: Female
  Weight: 50 kg

DRUGS (6)
  1. CLEXANE [Suspect]
     Active Substance: ENOXAPARIN SODIUM
     Indication: HYPERCOAGULATION
     Dosage: 40 MG, QD
     Route: 058
     Dates: start: 201812
  2. PROGESTERONE. [Concomitant]
     Active Substance: PROGESTERONE
     Indication: ASSISTED FERTILISATION
     Dosage: 1 MG, QD
     Route: 048
     Dates: start: 201812
  3. OMEGA 3 [FISH OIL] [Concomitant]
     Active Substance: FISH OIL
     Indication: ASSISTED FERTILISATION
     Dosage: 1 DF, QD
     Route: 048
     Dates: start: 2017
  4. CLEXANE [Suspect]
     Active Substance: ENOXAPARIN SODIUM
     Indication: COMPLICATION OF PREGNANCY
  5. DHA [Concomitant]
     Active Substance: DIETARY SUPPLEMENT
     Dosage: UNK
  6. ZOLOFT [Concomitant]
     Active Substance: SERTRALINE HYDROCHLORIDE
     Dosage: UNK UNK, UNK
     Route: 065

REACTIONS (3)
  - Product use in unapproved indication [Unknown]
  - Exposure during pregnancy [Unknown]
  - Gestational diabetes [Not Recovered/Not Resolved]
